FAERS Safety Report 7518692-7 (Version None)
Quarter: 2011Q2

REPORT INFORMATION
  Report Type: 
  Country: None (occurrence: None)
  Receive Date: 20110601
  Receipt Date: 20110601
  Transmission Date: 20111010
  Serious: Yes (Death, Life-Threatening, Hospitalization, Other)
  Sender: FDA-Public Use
  Company Number: None

PATIENT
  Age: 41 Year
  Sex: Female
  Weight: 61.2356 kg

DRUGS (1)
  1. PRISTIQ [Suspect]
     Indication: FATIGUE
     Dosage: 50MG DAILY PO
     Route: 048
     Dates: start: 20110504, end: 20110507

REACTIONS (2)
  - ACCIDENTAL DEATH [None]
  - ALCOHOL USE [None]
